FAERS Safety Report 8873871 (Version 1)
Quarter: 2012Q4

REPORT INFORMATION
  Report Type: 
  Country: GB (occurrence: GB)
  Receive Date: 20121030
  Receipt Date: 20121030
  Transmission Date: 20130627
  Serious: Yes (Hospitalization)
  Sender: FDA-Public Use
  Company Number: PHHY2012GB095293

PATIENT
  Age: 59 Year
  Sex: Male

DRUGS (6)
  1. SERTRALINE [Suspect]
     Dosage: 50 mg, UNK
     Route: 048
     Dates: start: 20120926, end: 20120926
  2. PREGABALIN [Concomitant]
     Dosage: 200 mg, BID
  3. LISINOPRIL [Concomitant]
     Dosage: 5 mg, QD
  4. SIMVASTATIN [Concomitant]
     Dosage: 40 mg, QD
  5. OXYBUTYNIN [Concomitant]
     Dosage: 5 mg, QD
  6. IBUPROFEN [Concomitant]
     Dosage: 400 mg, TID

REACTIONS (3)
  - Atrial fibrillation [Recovered/Resolved]
  - Circulatory collapse [Recovered/Resolved]
  - Syncope [Recovered/Resolved]
